FAERS Safety Report 16682585 (Version 1)
Quarter: 2019Q3

REPORT INFORMATION
  Report Type: Spontaneous
  Country: US (occurrence: US)
  Receive Date: 20190624
  Receipt Date: 20190624
  Transmission Date: 20191004
  Serious: No
  Sender: FDA-Public Use
  Company Number: None

PATIENT
  Sex: Female

DRUGS (1)
  1. IBRANCE [Suspect]
     Active Substance: PALBOCICLIB
     Indication: BREAST CANCER
     Route: 048
     Dates: start: 201902

REACTIONS (7)
  - Bone pain [None]
  - Muscle spasms [None]
  - Musculoskeletal pain [None]
  - Pain [None]
  - Hypoaesthesia [None]
  - Abdominal pain [None]
  - Swelling [None]
